FAERS Safety Report 6209863-0 (Version None)
Quarter: 2009Q2

REPORT INFORMATION
  Report Type: 
  Country: None (occurrence: None)
  Receive Date: 20090528
  Receipt Date: 20090528
  Transmission Date: 20091009
  Serious: Yes (Hospitalization)
  Sender: FDA-Public Use
  Company Number: None

PATIENT
  Sex: Male

DRUGS (5)
  1. XELODA [Suspect]
     Indication: METASTATIC GASTRIC CANCER
     Dosage: 850MG/M2 BID PO
     Route: 048
     Dates: start: 20081103, end: 20090501
  2. CETUXIMAB [Suspect]
     Indication: METASTATIC GASTRIC CANCER
     Dosage: 250MG/M2 WEEKLY IV
     Route: 042
     Dates: start: 20081103, end: 20090501
  3. OXALIPLATIN [Suspect]
     Indication: METASTATIC GASTRIC CANCER
     Dosage: 130MG/M2 EVERY 3 WEEKS IV
     Route: 042
     Dates: start: 20081103, end: 20090501
  4. FLOMAX [Concomitant]
  5. HYDROCODONE BITARTRATE [Concomitant]

REACTIONS (1)
  - SEPSIS [None]
